FAERS Safety Report 13101261 (Version 2)
Quarter: 2017Q1

REPORT INFORMATION
  Report Type: Spontaneous
  Country: FR (occurrence: FR)
  Receive Date: 20170110
  Receipt Date: 20170328
  Transmission Date: 20170428
  Serious: Yes (Hospitalization)
  Sender: FDA-Public Use
  Company Number: FR-PFIZER INC-2017003349

PATIENT
  Age: 81 Year
  Sex: Female
  Weight: 67 kg

DRUGS (3)
  1. NOVONORM [Concomitant]
     Active Substance: REPAGLINIDE
     Dosage: 5 MG, UNK
     Route: 048
  2. EUPRESSYL [Concomitant]
     Active Substance: URAPIDIL
     Dosage: 60 MG, UNK
     Route: 048
  3. BOSULIF [Suspect]
     Active Substance: BOSUTINIB MONOHYDRATE
     Indication: CHRONIC MYELOID LEUKAEMIA
     Dosage: 200 MG, DAILY
     Route: 048
     Dates: start: 20161202, end: 20161208

REACTIONS (7)
  - Diarrhoea [Recovered/Resolved]
  - Tremor [Recovered/Resolved]
  - Hypertension [Recovered/Resolved]
  - Disease recurrence [Recovered/Resolved]
  - Acute kidney injury [Unknown]
  - Pyrexia [Unknown]
  - Atrial fibrillation [Recovered/Resolved]

NARRATIVE: CASE EVENT DATE: 201612
